FAERS Safety Report 4483549-5 (Version None)
Quarter: 2004Q4

REPORT INFORMATION
  Report Type: 
  Country: None (occurrence: None)
  Receive Date: 20041021
  Receipt Date: 20041021
  Transmission Date: 20050328
  Serious: Yes (Other)
  Sender: FDA-Public Use
  Company Number: None

PATIENT
  Age: 86 Year
  Sex: Male
  Weight: 91 kg

DRUGS (17)
  1. GATIFLOXACIN [Suspect]
     Indication: PNEUMONIA
     Dosage: 400 MG IV Q24 H
     Route: 042
     Dates: start: 20041017, end: 20041018
  2. GLIPIZIDE [Concomitant]
  3. ALENDRONATE SODIUM [Concomitant]
  4. CANDESARTAN [Concomitant]
  5. WARFARIN SODIUM [Concomitant]
  6. DIGOXIN [Concomitant]
  7. FLUTICASONE PROPIONATE [Concomitant]
  8. FUROSEMIDE [Concomitant]
  9. MONTELUKAST [Concomitant]
  10. SIMVASTATIN [Concomitant]
  11. TERAZOSIN HCL [Concomitant]
  12. ZOLPIDEM TARTRATE [Concomitant]
  13. COMBIVENT [Concomitant]
  14. ASCORBIC ACID [Concomitant]
  15. VIT E [Concomitant]
  16. CA CARBONATE [Concomitant]
  17. M.V.I. [Concomitant]

REACTIONS (1)
  - HYPOGLYCAEMIA [None]
